FAERS Safety Report 7290557-8 (Version None)
Quarter: 2011Q1

REPORT INFORMATION
  Report Type: 
  Country: None (occurrence: None)
  Receive Date: 20110214
  Receipt Date: 20110210
  Transmission Date: 20110831
  Serious: Yes (Other)
  Sender: FDA-Public Use
  Company Number: US-PFIZER INC-2010152103

PATIENT
  Age: 64 Year
  Sex: Female
  Weight: 101 kg

DRUGS (6)
  1. LOSARTAN [Concomitant]
     Dosage: UNK
  2. LOXITANE [Concomitant]
     Indication: SCHIZOPHRENIA
     Dosage: 25 MG, UNK
     Dates: start: 20101119
  3. HYDROCHLOROTHIAZIDE [Concomitant]
     Dosage: UNK
  4. LIPITOR [Concomitant]
     Dosage: UNK
  5. GEODON [Suspect]
     Indication: SCHIZOPHRENIA
     Dosage: 80 MG, 1X/DAY
     Route: 048
     Dates: start: 20100618, end: 20101101
  6. SYNTHROID [Concomitant]
     Dosage: UNK

REACTIONS (1)
  - BLOOD GLUCOSE INCREASED [None]
